FAERS Safety Report 16820521 (Version 1)
Quarter: 2019Q3

REPORT INFORMATION
  Report Type: Spontaneous
  Country: IN (occurrence: IN)
  Receive Date: 20190918
  Receipt Date: 20190918
  Transmission Date: 20191005
  Serious: No
  Sender: FDA-Public Use
  Company Number: IN-LUPIN LIMITED-2018-09036

PATIENT
  Age: 14 Year
  Sex: Male

DRUGS (1)
  1. CETIL INJ DRY VIAL 1.5 G (CEFUROXIME AXETIL) [Suspect]
     Active Substance: CEFUROXIME AXETIL
     Indication: PROPHYLAXIS
     Dosage: UNK, TEST DOSE
     Route: 065
     Dates: start: 201812

REACTIONS (2)
  - Injection site pain [Unknown]
  - Injection site pruritus [Unknown]

NARRATIVE: CASE EVENT DATE: 201812
